FAERS Safety Report 15917911 (Version 1)
Quarter: 2019Q1

REPORT INFORMATION
  Report Type: Spontaneous
  Country: FR (occurrence: FR)
  Receive Date: 20190205
  Receipt Date: 20190205
  Transmission Date: 20190417
  Serious: Yes (Life-Threatening, Hospitalization, Other)
  Sender: FDA-Public Use
  Company Number: FR-IPSEN BIOPHARMACEUTICALS, INC.-2019-01639

PATIENT
  Age: 45 Year
  Sex: Male

DRUGS (13)
  1. AVASTIN [Suspect]
     Active Substance: BEVACIZUMAB
     Indication: RECTAL CANCER METASTATIC
     Dosage: UNKNOWN
     Route: 065
  2. ELVORINE [Suspect]
     Active Substance: LEUCOVORIN CALCIUM
     Indication: RECTAL CANCER METASTATIC
     Dosage: UNKNOWN
     Route: 065
  3. OXYCONTIN [Concomitant]
     Active Substance: OXYCODONE HYDROCHLORIDE
     Dosage: UNKNOWN
  4. ONIVYDE [Suspect]
     Active Substance: IRINOTECAN HYDROCHLORIDE
     Indication: RECTAL CANCER METASTATIC
     Dosage: UNKNOWN
     Route: 065
  5. MOVENTIG [Suspect]
     Active Substance: NALOXEGOL OXALATE
     Indication: CONSTIPATION
     Dosage: UNKNOWN
     Route: 048
  6. PECFENT [Concomitant]
     Active Substance: FENTANYL CITRATE
     Dosage: NASAL DROP (NASAL SPRAY TOO), UNKNOWN
  7. FORLAX [Concomitant]
     Active Substance: POLYETHYLENE GLYCOL 4000
     Dosage: UNKNOWN
  8. MORPHINE [Concomitant]
     Active Substance: MORPHINE
     Dosage: UNKNOWN
  9. FLUOROURACIL. [Suspect]
     Active Substance: FLUOROURACIL
     Indication: RECTAL CANCER METASTATIC
     Dosage: UNKNOWN
     Route: 065
  10. SOLUPRED [Concomitant]
     Dosage: UNKNOWN
  11. ONIVYDE [Suspect]
     Active Substance: IRINOTECAN HYDROCHLORIDE
     Indication: OFF LABEL USE
  12. MIANSERIN HYDROCHLORIDE [Concomitant]
     Active Substance: MIANSERIN HYDROCHLORIDE
     Dosage: UNKNOWN
  13. SERESTA [Concomitant]
     Active Substance: OXAZEPAM
     Dosage: UNKNOWN

REACTIONS (4)
  - Small intestinal perforation [Recovered/Resolved]
  - Post procedural infection [Recovered/Resolved]
  - Contraindicated product administered [Unknown]
  - Superinfection [Recovered/Resolved]

NARRATIVE: CASE EVENT DATE: 201807
